FAERS Safety Report 25898653 (Version 2)
Quarter: 2025Q4

REPORT INFORMATION
  Report Type: Spontaneous
  Country: JP (occurrence: JP)
  Receive Date: 20251009
  Receipt Date: 20251031
  Transmission Date: 20260117
  Serious: Yes (Hospitalization)
  Sender: EMD SERONO INC
  Company Number: JP-Merck Healthcare KGaA-2025050740

PATIENT
  Age: 56 Year
  Sex: Male
  Weight: 75 kg

DRUGS (6)
  1. METGLUCO [Suspect]
     Active Substance: METFORMIN HYDROCHLORIDE
     Indication: Product used for unknown indication
     Dosage: QD, UNKNOWN
  2. METGLUCO [Suspect]
     Active Substance: METFORMIN HYDROCHLORIDE
     Dosage: 31-MAR TO 30-SEP (YEAR NOT REPORTED)
  3. IMEGLIMIN HYDROCHLORIDE [Suspect]
     Active Substance: IMEGLIMIN HYDROCHLORIDE
     Indication: Type 2 diabetes mellitus
     Dosage: BID, UNKNOWN
  4. IMEGLIMIN HYDROCHLORIDE [Suspect]
     Active Substance: IMEGLIMIN HYDROCHLORIDE
     Dosage: STARTED BETWEEN 31-MAR AND 30 APR (YEAR NOT REPORTED) TILL 30-SEP (YEAR NOT REPORTED)
  5. CANAGLIFLOZIN [Concomitant]
     Active Substance: CANAGLIFLOZIN
     Indication: Product used for unknown indication
     Dosage: 31-MAR TO 30-SEP (YEAR NOT REPORTED)
  6. TENELIGLIPTIN [Concomitant]
     Active Substance: TENELIGLIPTIN
     Indication: Product used for unknown indication
     Dosage: 31-MAR TO 30-SEP (YEAR NOT REPORTED)

REACTIONS (2)
  - Diabetes mellitus management [Unknown]
  - Weight increased [Recovering/Resolving]
